FAERS Safety Report 10579027 (Version 4)
Quarter: 2015Q1

REPORT INFORMATION
  Report Type: Spontaneous
  Country: US (occurrence: US)
  Receive Date: 20141112
  Receipt Date: 20150202
  Transmission Date: 20150720
  Serious: No
  Sender: FDA-Public Use
  Company Number: US-PFIZER INC-2014309082

PATIENT
  Age: 71 Year
  Sex: Female

DRUGS (5)
  1. TYLENOL [Concomitant]
     Active Substance: ACETAMINOPHEN
     Dosage: 1000 MG, UNK
     Dates: start: 201409
  2. CELEBREX [Suspect]
     Active Substance: CELECOXIB
     Indication: MUSCLE STRAIN
  3. CELEBREX [Suspect]
     Active Substance: CELECOXIB
     Indication: KNEE ARTHROPLASTY
  4. CELEBREX [Suspect]
     Active Substance: CELECOXIB
     Indication: MYALGIA
     Dosage: 200 MG, 1X/DAY
     Dates: start: 201409
  5. CELEBREX [Suspect]
     Active Substance: CELECOXIB
     Indication: MUSCULOSKELETAL PAIN

REACTIONS (5)
  - Faeces soft [Recovered/Resolved]
  - Epigastric discomfort [Recovered/Resolved]
  - Flatulence [Unknown]
  - Abdominal discomfort [Unknown]
  - Abdominal pain upper [Recovered/Resolved]
